FAERS Safety Report 4491457-9 (Version None)
Quarter: 2004Q4

REPORT INFORMATION
  Report Type: 
  Country: None (occurrence: None)
  Receive Date: 20041103
  Receipt Date: 20041027
  Transmission Date: 20050328
  Serious: Yes (Congenital Anomaly)
  Sender: FDA-Public Use
  Company Number: US-BRISTOL-MYERS SQUIBB COMPANY-12751251

PATIENT
  Sex: Male

DRUGS (3)
  1. GLUCOPHAGE [Suspect]
     Route: 064
  2. CLOMID [Concomitant]
     Route: 064
  3. PRENATAL VITAMINS [Concomitant]
     Route: 064

REACTIONS (1)
  - HYPOSPADIAS [None]
